FAERS Safety Report 9043159 (Version 1)
Quarter: 2013Q1

REPORT INFORMATION
  Report Type: Report from Study
  Country: US (occurrence: US)
  Receive Date: 20130129
  Receipt Date: 20130129
  Transmission Date: 20140127
  Serious: No
  Sender: FDA-Public Use
  Company Number: US-ABBOTT-12P-163-0895191-00

PATIENT
  Age: 55 Year
  Sex: Female

DRUGS (7)
  1. HUMIRA 40 MG/0.8 ML PEN [Suspect]
     Indication: CROHN^S DISEASE
     Dosage: LOADING DOSE
     Dates: start: 20120111
  2. ASACOL [Concomitant]
     Indication: CROHN^S DISEASE
     Dosage: 2 PILLS TID
  3. BACLOFEN [Concomitant]
     Indication: MUSCLE SPASMS
  4. SYNTHROID [Concomitant]
     Indication: HYPOTHYROIDISM
     Dosage: DAILY
  5. LIBRAX [Concomitant]
     Indication: PRODUCT USED FOR UNKNOWN INDICATION
  6. LORTAB [Concomitant]
     Indication: PRODUCT USED FOR UNKNOWN INDICATION
  7. LIDODERM [Concomitant]
     Indication: PROCEDURAL PAIN
     Dosage: PATCH APPLIED TO SHOULDER/HEAD(EOD, PRN)

REACTIONS (6)
  - Erythema [Recovering/Resolving]
  - Skin warm [Recovering/Resolving]
  - Oedema peripheral [Recovering/Resolving]
  - Pain in extremity [Recovering/Resolving]
  - Heart rate increased [Recovering/Resolving]
  - Heart rate irregular [Unknown]
